FAERS Safety Report 6568146-X (Version None)
Quarter: 2010Q1

REPORT INFORMATION
  Report Type: 
  Country: None (occurrence: None)
  Receive Date: 20100203
  Receipt Date: 20100127
  Transmission Date: 20100710
  Serious: Yes (Other)
  Sender: FDA-Public Use
  Company Number: US-BAYER-201012718NA

PATIENT
  Sex: Female

DRUGS (2)
  1. YAZ [Suspect]
     Indication: DRUG USE FOR UNKNOWN INDICATION
     Route: 048
     Dates: start: 20071201
  2. YASMIN [Suspect]
     Indication: DRUG USE FOR UNKNOWN INDICATION
     Route: 048
     Dates: start: 20040101, end: 20071101

REACTIONS (1)
  - CEREBROVASCULAR ACCIDENT [None]
